FAERS Safety Report 14287185 (Version 8)
Quarter: 2018Q3

REPORT INFORMATION
  Report Type: Spontaneous
  Country: GR (occurrence: GR)
  Receive Date: 20171214
  Receipt Date: 20180809
  Transmission Date: 20181010
  Serious: Yes (Other)
  Sender: FDA-Public Use
  Company Number: GR-BAXTER-2017BAX042267

PATIENT
  Age: 62 Year
  Sex: Female

DRUGS (48)
  1. TRASTUZUMAB. [Suspect]
     Active Substance: TRASTUZUMAB
     Dosage: COMBINATION WITH GEMCITABINE AND CARBOPLATIN
     Route: 065
     Dates: start: 2009
  2. TRASTUZUMAB. [Suspect]
     Active Substance: TRASTUZUMAB
     Dosage: COMBINATION WITH ERIBULIN
     Route: 065
     Dates: start: 2009
  3. TRASTUZUMAB EMTANSINE [Suspect]
     Active Substance: ADO-TRASTUZUMAB EMTANSINE
     Dosage: REGIMEN#1,
     Route: 065
     Dates: start: 2009
  4. ENDOXAN 1000 MG ? POWDER FOR SOLUTION FOR INJECTION [Suspect]
     Active Substance: CYCLOPHOSPHAMIDE
     Indication: BREAST CANCER METASTATIC
     Dosage: REGIMEN #1
     Route: 065
     Dates: start: 2006
  5. CARBOPLATIN. [Suspect]
     Active Substance: CARBOPLATIN
     Indication: RECURRENT CANCER
     Dosage: COMBINATION WITH TRASTUZUMAB AND GEMCITABINE
     Route: 065
     Dates: start: 2009
  6. EXEMESTANE. [Suspect]
     Active Substance: EXEMESTANE
     Indication: BREAST CANCER METASTATIC
     Dosage: COMBINATION WITH TRASTZUMAB AND EVEROLIMUS
     Route: 065
     Dates: start: 2009
  7. EXEMESTANE. [Suspect]
     Active Substance: EXEMESTANE
     Indication: RECURRENT CANCER
     Dosage: COMBINATION WITH TRASTZUMAB AND EVEROLIMUS
     Route: 065
     Dates: start: 2009
  8. LIPOSOMAL DOXORUBICIN HCL [Suspect]
     Active Substance: DOXORUBICIN HYDROCHLORIDE
     Indication: BREAST CANCER METASTATIC
     Dosage: REGIMEN#1, COMBINATION WITH TRASTUZUMAB
     Route: 065
     Dates: start: 2009
  9. TRASTUZUMAB. [Suspect]
     Active Substance: TRASTUZUMAB
     Dosage: 1 DF, QD COMBINATION WITH TAMOXIFEN
     Route: 065
     Dates: start: 2009
  10. EPIRUBICIN HCL [Suspect]
     Active Substance: EPIRUBICIN HYDROCHLORIDE
     Indication: BREAST CANCER METASTATIC
     Dosage: REGIMEN #1
     Route: 065
     Dates: start: 2006
  11. DOCETAXEL. [Suspect]
     Active Substance: DOCETAXEL
     Indication: RECURRENT CANCER
     Route: 065
  12. VINORELBINE [Suspect]
     Active Substance: VINORELBINE\VINORELBINE TARTRATE
     Indication: RECURRENT CANCER
     Dosage: 1 DF, 1 QD
     Route: 065
     Dates: start: 2009
  13. FULVESTRANT. [Suspect]
     Active Substance: FULVESTRANT
     Indication: RECURRENT CANCER
     Dosage: REGIMEN#1, COMBINATION WITH TRASTUZUMAB
     Route: 065
     Dates: start: 2009
  14. TRASTUZUMAB. [Suspect]
     Active Substance: TRASTUZUMAB
     Indication: BREAST CANCER METASTATIC
     Dosage: 1 DF, QD, COMBINATION WITH VINORELBINE
     Route: 065
     Dates: start: 2009
  15. GEMCITABINE HYDROCHLORIDE. [Suspect]
     Active Substance: GEMCITABINE HYDROCHLORIDE
     Indication: RECURRENT CANCER
     Route: 065
  16. CAPECITABINE. [Suspect]
     Active Substance: CAPECITABINE
     Indication: RECURRENT CANCER
     Dosage: COMBINATION WITH TRASTUZUMAB
     Route: 065
     Dates: start: 2009
  17. LAPATINIB [Suspect]
     Active Substance: LAPATINIB
     Indication: BREAST CANCER METASTATIC
     Dosage: REGIMEN#1, COMBINATION WITH CAPECITABINE
     Route: 065
     Dates: start: 2009
  18. LAPATINIB [Suspect]
     Active Substance: LAPATINIB
     Indication: RECURRENT CANCER
     Dosage: REGIMEN#1 COMBINATION WITH CAPECITABINE
     Route: 065
     Dates: start: 2009
  19. FULVESTRANT. [Suspect]
     Active Substance: FULVESTRANT
     Indication: BREAST CANCER METASTATIC
     Route: 065
  20. EVEROLIMUS. [Suspect]
     Active Substance: EVEROLIMUS
     Indication: PROPHYLAXIS AGAINST TRANSPLANT REJECTION
     Route: 065
  21. TRASTUZUMAB. [Suspect]
     Active Substance: TRASTUZUMAB
     Dosage: COMBINATION WITH CAPECITABINE
     Route: 065
     Dates: start: 2009
  22. TRASTUZUMAB. [Suspect]
     Active Substance: TRASTUZUMAB
     Dosage: COMBINATION WITH EXEMESTANE AND EVEROLIMUS
     Route: 065
     Dates: start: 2009
  23. CAPECITABINE BIOGARAN [Suspect]
     Active Substance: CAPECITABINE
     Indication: BREAST CANCER METASTATIC
     Route: 065
     Dates: start: 2009
  24. METHOTREXATE SODIUM. [Suspect]
     Active Substance: METHOTREXATE SODIUM
     Indication: BREAST CANCER METASTATIC
     Dosage: REGIMEN #1
     Route: 065
     Dates: start: 2006
  25. GEMCITABINE HYDROCHLORIDE. [Suspect]
     Active Substance: GEMCITABINE HYDROCHLORIDE
     Dosage: COMBINATION WITH TRASTUZUMAB AND CARBOPLATIN
     Route: 065
     Dates: start: 2009
  26. CAPECITABINE. [Suspect]
     Active Substance: CAPECITABINE
     Indication: BREAST CANCER METASTATIC
     Dosage: REGIMEN#1, COMBINATION WITH LAPATINIB
     Route: 065
     Dates: start: 2009
  27. CAPECITABINE. [Suspect]
     Active Substance: CAPECITABINE
     Dosage: 1 DF, CYCLIC COMBINATION WITH TRASTUZUMAB
     Route: 065
     Dates: start: 2009
  28. LIPOSOMAL DOXORUBICIN HCL [Suspect]
     Active Substance: DOXORUBICIN HYDROCHLORIDE
     Indication: RECURRENT CANCER
     Route: 065
  29. TRASTUZUMAB. [Suspect]
     Active Substance: TRASTUZUMAB
     Dosage: COMBINATION WITH FULVESTRANT
     Route: 065
     Dates: start: 2009
  30. DOCETAXEL. [Suspect]
     Active Substance: DOCETAXEL
     Indication: BREAST CANCER METASTATIC
     Dosage: REGIMEN#1
     Route: 065
     Dates: start: 2009
  31. TAMOXIFEN CITRATE. [Suspect]
     Active Substance: TAMOXIFEN CITRATE
     Indication: RECURRENT CANCER
     Route: 065
  32. VINORELBINE [Suspect]
     Active Substance: VINORELBINE\VINORELBINE TARTRATE
     Indication: BREAST CANCER METASTATIC
     Dosage: REGIMEN#1, COMBINATION WITH TRASTUZUMAB
     Route: 065
     Dates: start: 2009
  33. VINORELBINE [Suspect]
     Active Substance: VINORELBINE\VINORELBINE TARTRATE
     Route: 065
  34. ERIBULIN [Suspect]
     Active Substance: ERIBULIN
     Indication: RECURRENT CANCER
     Dosage: REGIMEN#1, COMBINATION WITH TRASTUZUMAB
     Route: 065
     Dates: start: 2009
  35. ERIBULIN [Suspect]
     Active Substance: ERIBULIN
     Indication: BREAST CANCER METASTATIC
     Route: 065
  36. EVEROLIMUS. [Suspect]
     Active Substance: EVEROLIMUS
     Indication: RECURRENT CANCER
     Dosage: REGIMEN#1, COMBINATION WITH TRASTZUMAB AND EXEMESTANE
     Route: 065
     Dates: start: 2009
  37. TRASTUZUMAB. [Suspect]
     Active Substance: TRASTUZUMAB
     Dosage: COMBINATION WITH LIPOSOMAL DOXORUBICIN HCL
     Route: 065
     Dates: start: 2009
  38. PACLITAXEL. [Suspect]
     Active Substance: PACLITAXEL
     Indication: BREAST CANCER METASTATIC
     Dosage: REGIMEN #1
     Route: 065
     Dates: start: 2006
  39. FLUOROURACIL. [Suspect]
     Active Substance: FLUOROURACIL
     Indication: BREAST CANCER METASTATIC
     Dosage: REGIMEN#1
     Route: 065
     Dates: start: 2006
  40. TAMOXIFEN CITRATE. [Suspect]
     Active Substance: TAMOXIFEN CITRATE
     Indication: BREAST CANCER METASTATIC
     Dosage: REGIMEN#1, COMBINATION WITH TRASTUZUMAB
     Route: 048
     Dates: start: 2009
  41. GEMCITABINE HYDROCHLORIDE. [Suspect]
     Active Substance: GEMCITABINE HYDROCHLORIDE
     Indication: BREAST CANCER METASTATIC
     Dosage: COMBINATION WITH TRASTUZUMAB AND CARBOPLATIN
     Route: 065
     Dates: start: 2009
  42. CARBOPLATIN. [Suspect]
     Active Substance: CARBOPLATIN
     Indication: BREAST CANCER METASTATIC
     Dosage: COMBINATION WITH TRASTUZUMAB AND GEMCITABINE
     Route: 065
     Dates: start: 2009
  43. LAPATINIB [Suspect]
     Active Substance: LAPATINIB
     Indication: METASTATIC MALIGNANT MELANOMA
     Dosage: 1 DF, QD
     Route: 065
  44. EVEROLIMUS. [Suspect]
     Active Substance: EVEROLIMUS
     Indication: BREAST CANCER
     Dosage: 1 DF, COMBINATION WITH TRASTZUMAB AND EXEMESTANE
     Route: 065
     Dates: start: 2009
  45. TRASTUZUMAB. [Suspect]
     Active Substance: TRASTUZUMAB
     Indication: RECURRENT CANCER
     Dosage: REGIMEN#1
     Route: 065
     Dates: start: 2009
  46. TRASTUZUMAB. [Suspect]
     Active Substance: TRASTUZUMAB
     Dosage: COMBINATION WITH CAPECITABINE
     Route: 065
     Dates: start: 2009
  47. TRASTUZUMAB EMTANSINE [Suspect]
     Active Substance: ADO-TRASTUZUMAB EMTANSINE
     Indication: RECURRENT CANCER
     Dosage: 1 DF, QD
     Route: 065
     Dates: start: 2009
  48. FULVESTRANT. [Suspect]
     Active Substance: FULVESTRANT
     Indication: METASTATIC MALIGNANT MELANOMA
     Dosage: 1 DF, QD
     Route: 030
     Dates: start: 2009

REACTIONS (6)
  - Metastases to lymph nodes [Unknown]
  - Recurrent cancer [Unknown]
  - Metastases to lung [Unknown]
  - Metastases to skin [Unknown]
  - Metastases to bone [Unknown]
  - Oestrogen receptor positive breast cancer [Unknown]

NARRATIVE: CASE EVENT DATE: 2009
